FAERS Safety Report 9691203 (Version 4)
Quarter: 2013Q4

REPORT INFORMATION
  Report Type: Report from Study
  Country: US (occurrence: US)
  Receive Date: 20131115
  Receipt Date: 20131210
  Transmission Date: 20140711
  Serious: Yes (Death)
  Sender: FDA-Public Use
  Company Number: US-MILLENNIUM PHARMACEUTICALS, INC.-2013MPI000985

PATIENT
  Age: 88 Year
  Sex: Male
  Weight: 74.83 kg

DRUGS (19)
  1. VELCADE [Suspect]
     Indication: MANTLE CELL LYMPHOMA
     Dosage: 2.4 MG, UNK
     Route: 058
     Dates: start: 20131029, end: 20131108
  2. RITUXIMAB [Suspect]
     Indication: MANTLE CELL LYMPHOMA
     Dosage: 701 MG, UNK
     Route: 042
     Dates: start: 20131029, end: 20131105
  3. LENALIDOMIDE [Suspect]
     Indication: MANTLE CELL LYMPHOMA
     Dosage: 15 MG, UNK
     Route: 048
     Dates: start: 20131029, end: 20131108
  4. NORMAL SALINE [Concomitant]
     Indication: DEHYDRATION
     Dosage: 1000 ML, UNK
     Route: 042
     Dates: start: 20131108, end: 20131108
  5. POTASSIUM CHLORIDE [Concomitant]
     Indication: HYPOKALAEMIA
     Dosage: 20 MEQ, UNK
     Route: 042
     Dates: start: 20131108, end: 20131108
  6. IMODIUM AD [Concomitant]
     Indication: DIARRHOEA
     Dosage: UNK
     Route: 048
     Dates: start: 20131106
  7. ZOFRAN                             /00955301/ [Concomitant]
     Indication: PROPHYLAXIS OF NAUSEA AND VOMITING
     Dosage: 8 MG, ON DAYS 1 AND 8 EVERY 21 DAYS
     Route: 042
     Dates: start: 20131029
  8. ZOFRAN                             /00955301/ [Concomitant]
     Dosage: 8 MG, ON DAYS 4 AND 11 EVERY CYCLE
     Route: 048
     Dates: start: 20131101
  9. DEXAMETHASONE [Concomitant]
     Indication: PROPHYLAXIS OF NAUSEA AND VOMITING
     Dosage: 8 MG, ON DAYS 1 AND 8 EVERY 21 DAYS
     Route: 042
     Dates: start: 20131029
  10. DEXAMETHASONE [Concomitant]
     Dosage: 8 MG, ON DAYS 4 AND 11 OF EVERY CYCLE
     Route: 048
     Dates: start: 20131101
  11. BENADRYL                           /00000402/ [Concomitant]
     Indication: PROPHYLAXIS OF NAUSEA AND VOMITING
     Dosage: 50 MG, ON DAYS 1, 8 AND 15 EVERY 21 DAYS
     Route: 048
     Dates: start: 20131029
  12. VALTREX [Concomitant]
     Indication: HERPES ZOSTER
     Dosage: 500 MG, UNK
     Route: 048
     Dates: start: 20131027
  13. ALLOPURINOL [Concomitant]
     Indication: GOUT
     Dosage: 300 MG, QD
     Route: 048
     Dates: start: 20131027
  14. AMLODIPINE [Concomitant]
     Indication: HYPERTENSION
     Dosage: 5 MG, UNK
     Route: 048
     Dates: start: 2006
  15. BACTRIM DS [Concomitant]
     Indication: INFECTION PROPHYLAXIS
     Dosage: UNK
     Route: 048
     Dates: start: 20131027
  16. MULTIVITAMIN                       /00097801/ [Concomitant]
     Indication: SUPPLEMENTATION THERAPY
     Dosage: UNK
     Route: 048
     Dates: start: 1990
  17. TYLENOL                            /00020001/ [Concomitant]
     Indication: PROPHYLAXIS
     Dosage: 650 MG, ON DAYS 1, 8 AND 15 OF EVERY CYCLE
     Route: 048
     Dates: start: 20131029
  18. COUMADIN                           /00014802/ [Concomitant]
     Indication: ATRIAL FIBRILLATION
     Dosage: 5 MG, QD
     Route: 048
     Dates: start: 2006
  19. PROTONIX [Concomitant]
     Indication: GASTROOESOPHAGEAL REFLUX DISEASE
     Dosage: 20 MG, QD
     Route: 048
     Dates: start: 2003

REACTIONS (1)
  - Sudden cardiac death [Fatal]
